FAERS Safety Report 5546014-X (Version None)
Quarter: 2007Q4

REPORT INFORMATION
  Report Type: 
  Country: None (occurrence: None)
  Receive Date: 20071211
  Receipt Date: 20071009
  Transmission Date: 20080405
  Serious: No
  Sender: FDA-Public Use
  Company Number: US-BRISTOL-MYERS SQUIBB COMPANY-13685425

PATIENT
  Sex: Female
  Weight: 88 kg

DRUGS (17)
  1. EMSAM [Suspect]
     Indication: ANXIETY
     Dosage: INITAL DOSE OF SELEGILINE 6MG/24HR INCREASED TO 9 MG /24 HOUR
     Route: 062
  2. EMSAM [Suspect]
     Indication: PANIC ATTACK
     Dosage: INITAL DOSE OF SELEGILINE 6MG/24HR INCREASED TO 9 MG /24 HOUR
     Route: 062
  3. EMSAM [Suspect]
     Indication: DEPRESSION
     Dosage: INITAL DOSE OF SELEGILINE 6MG/24HR INCREASED TO 9 MG /24 HOUR
     Route: 062
  4. OXYCODONE HCL [Concomitant]
  5. XANAX [Concomitant]
  6. CLONIDINE [Concomitant]
  7. DILTIAZEM [Concomitant]
  8. HYOSCYAMINE [Concomitant]
  9. BUTOBARBITAL [Concomitant]
  10. PROMETRIUM [Concomitant]
  11. ALPRAZOLAM (GEN) [Concomitant]
  12. FIORINAL [Concomitant]
  13. VIBRAMYCIN [Concomitant]
  14. BIAXIN [Concomitant]
  15. NAPROSYN [Concomitant]
  16. DILAUDID [Concomitant]
  17. MORPHINE [Concomitant]

REACTIONS (3)
  - DRUG INEFFECTIVE [None]
  - PANIC ATTACK [None]
  - WEIGHT INCREASED [None]
